FAERS Safety Report 5659878-6 (Version None)
Quarter: 2008Q1

REPORT INFORMATION
  Report Type: 
  Country: None (occurrence: None)
  Receive Date: 20080311
  Receipt Date: 20070731
  Transmission Date: 20080703
  Serious: No
  Sender: FDA-Public Use
  Company Number: US-BAYER-200712459BCC

PATIENT
  Age: 83 Year
  Sex: Female
  Weight: 71 kg

DRUGS (6)
  1. ALEVE [Suspect]
     Indication: ARTHRALGIA
     Dosage: UNIT DOSE: 220 MG
     Route: 048
     Dates: start: 20070730
  2. ALEVE [Suspect]
     Route: 048
     Dates: start: 20070701
  3. SYNTHROID [Concomitant]
  4. ATENOLOL [Concomitant]
  5. BENICAR [Concomitant]
  6. LASIX [Concomitant]

REACTIONS (2)
  - HEADACHE [None]
  - NAUSEA [None]
